FAERS Safety Report 20566407 (Version 1)
Quarter: 2022Q1

REPORT INFORMATION
  Report Type: Spontaneous
  Country: US (occurrence: US)
  Receive Date: 20220308
  Receipt Date: 20220308
  Transmission Date: 20220423
  Serious: No
  Sender: FDA-Public Use
  Company Number: US-TAKEDA-2022TUS014701

PATIENT
  Age: 83 Year
  Sex: Female
  Weight: 70 kg

DRUGS (3)
  1. MOTEGRITY [Suspect]
     Active Substance: PRUCALOPRIDE SUCCINATE
     Indication: Constipation
     Dosage: UNK UNK, QD
     Route: 065
     Dates: start: 2021, end: 202201
  2. INSULIN NOS [Concomitant]
     Active Substance: INSULIN NOS
  3. MIRALAX [Concomitant]
     Active Substance: POLYETHYLENE GLYCOL 3350

REACTIONS (2)
  - Therapy interrupted [Unknown]
  - Inability to afford medication [Unknown]

NARRATIVE: CASE EVENT DATE: 20220101
